FAERS Safety Report 10926790 (Version 1)
Quarter: 2015Q1

REPORT INFORMATION
  Report Type: Spontaneous
  Country: US (occurrence: None)
  Receive Date: 20150209
  Receipt Date: 20150209
  Transmission Date: 20150721
  Serious: Yes (Other)
  Sender: FDA-Public Use
  Company Number: 2014SCPR009392

PATIENT
  Age: 56 Year
  Sex: Female

DRUGS (11)
  1. SINGULAIR (MONTELUKAST SODIUM) [Concomitant]
  2. LYRICA [Concomitant]
     Active Substance: PREGABALIN
  3. METFORMIN [Concomitant]
     Active Substance: METFORMIN HYDROCHLORIDE
  4. KLONOPIN [Concomitant]
     Active Substance: CLONAZEPAM
  5. VYTORIN [Concomitant]
     Active Substance: EZETIMIBE\SIMVASTATIN
  6. TRILIPIX [Concomitant]
     Active Substance: FENOFIBRIC ACID
  7. BUPROPION HCL XL [Suspect]
     Active Substance: BUPROPION HYDROCHLORIDE
     Indication: DEPRESSION
     Dosage: 1 DF, OD, ORAL
     Route: 048
     Dates: start: 2014
  8. VIIBRYD [Concomitant]
     Active Substance: VILAZODONE HYDROCHLORIDE
  9. PREVACID [Concomitant]
     Active Substance: LANSOPRAZOLE
  10. LOVAZA [Concomitant]
     Active Substance: OMEGA-3-ACID ETHYL ESTERS
  11. LOSARTAN [Concomitant]
     Active Substance: LOSARTAN

REACTIONS (3)
  - Medication residue present [None]
  - Depression [None]
  - Product quality issue [None]

NARRATIVE: CASE EVENT DATE: 201408
